FAERS Safety Report 7215993-7 (Version None)
Quarter: 2011Q1

REPORT INFORMATION
  Report Type: 
  Country: None (occurrence: None)
  Receive Date: 20110107
  Receipt Date: 20101224
  Transmission Date: 20110831
  Serious: Yes (Other)
  Sender: FDA-Public Use
  Company Number: PHHY2010ES88209

PATIENT
  Age: 40 Year
  Sex: Male

DRUGS (6)
  1. METRONIDAZOLE [Suspect]
     Indication: CENTRAL NERVOUS SYSTEM ABSCESS
  2. PHENYTOIN [Suspect]
     Indication: CENTRAL NERVOUS SYSTEM ABSCESS
  3. CEFTRIAXONE [Suspect]
     Indication: STATUS EPILEPTICUS
     Dosage: 2 G, EVERY 12 HOURS
     Route: 042
  4. PHENYTOIN [Suspect]
     Indication: STATUS EPILEPTICUS
     Dosage: UNK
  5. METRONIDAZOLE [Suspect]
     Indication: STATUS EPILEPTICUS
     Dosage: UNK
  6. CEFTRIAXONE [Suspect]
     Indication: CENTRAL NERVOUS SYSTEM ABSCESS

REACTIONS (8)
  - LYMPHADENOPATHY [None]
  - PRURITUS [None]
  - DRUG RASH WITH EOSINOPHILIA AND SYSTEMIC SYMPTOMS [None]
  - EOSINOPHILIA [None]
  - LYMPHOCYTE TRANSFORMATION TEST POSITIVE [None]
  - PYREXIA [None]
  - RASH ERYTHEMATOUS [None]
  - HEPATIC ENZYME INCREASED [None]
